FAERS Safety Report 25671052 (Version 1)
Quarter: 2025Q3

REPORT INFORMATION
  Report Type: Spontaneous
  Country: CA (occurrence: None)
  Receive Date: 20250811
  Receipt Date: 20250811
  Transmission Date: 20251020
  Serious: Yes (Other)
  Sender: FDA-CTU
  Company Number: None

PATIENT
  Age: 29 Year
  Sex: Male

DRUGS (4)
  1. COLGATE (SODIUM FLUORIDE) [Suspect]
     Active Substance: SODIUM FLUORIDE
     Indication: Dental disorder prophylaxis
     Dosage: FREQUENCY : DAILY;?
     Route: 048
     Dates: start: 20250807, end: 20250811
  2. CREST ANTI-CAVITY REGULAR [Suspect]
     Active Substance: SODIUM FLUORIDE
  3. COSMETICS [Suspect]
     Active Substance: COSMETICS
  4. COSMETICS [Suspect]
     Active Substance: COSMETICS

REACTIONS (5)
  - Skin tightness [None]
  - Hormone level abnormal [None]
  - Eye pain [None]
  - Product formulation issue [None]
  - Product use issue [None]

NARRATIVE: CASE EVENT DATE: 20250811
